FAERS Safety Report 26151279 (Version 1)
Quarter: 2025Q4

REPORT INFORMATION
  Report Type: Spontaneous
  Country: CN (occurrence: CN)
  Receive Date: 20251212
  Receipt Date: 20251212
  Transmission Date: 20260117
  Serious: Yes (Other)
  Sender: PFIZER
  Company Number: CN-TAKEDA-2025TUS109896

PATIENT
  Age: 59 Year
  Sex: Male

DRUGS (2)
  1. BRENTUXIMAB VEDOTIN [Suspect]
     Active Substance: BRENTUXIMAB VEDOTIN
     Indication: Peripheral T-cell lymphoma unspecified stage IV
     Dosage: 50 MILLIGRAM, QD
     Route: 042
     Dates: start: 20251120, end: 20251124
  2. MITOXANTRONE [Concomitant]
     Active Substance: MITOXANTRONE HYDROCHLORIDE
     Dosage: MITOXANTRONE LIPOSOMES 10MG DAY1
     Dates: start: 20251120

REACTIONS (1)
  - Myelosuppression [Unknown]

NARRATIVE: CASE EVENT DATE: 20251124
